FAERS Safety Report 11578945 (Version 1)
Quarter: 2015Q3

REPORT INFORMATION
  Report Type: Report from Study
  Country: US (occurrence: None)
  Receive Date: 20150930
  Receipt Date: 20150930
  Transmission Date: 20151125
  Serious: No
  Sender: FDA-Public Use
  Company Number: US-MDT-ADR-2015-01875

PATIENT
  Age: 69 Year
  Sex: Male

DRUGS (2)
  1. BACLOFEN INTRATHECAL 300 MCG/ML [Suspect]
     Active Substance: BACLOFEN
     Indication: BACK PAIN
     Dosage: 55.019 MCG/DAY
  2. MORPHINE SULFATE INTRATHECAL 40 MG/ML [Suspect]
     Active Substance: MORPHINE SULFATE
     Indication: BACK PAIN
     Dosage: 7.358 MG/DAY

REACTIONS (2)
  - Adverse drug reaction [None]
  - Loss of control of legs [None]
